FAERS Safety Report 24141322 (Version 1)
Quarter: 2024Q3

REPORT INFORMATION
  Report Type: Spontaneous
  Country: CN (occurrence: CN)
  Receive Date: 20240726
  Receipt Date: 20240726
  Transmission Date: 20241017
  Serious: Yes (Hospitalization, Other)
  Sender: MSN LABORATORIES
  Company Number: CN-MSNLABS-2024MSNLIT01642

PATIENT

DRUGS (2)
  1. CAPECITABINE [Suspect]
     Active Substance: CAPECITABINE
     Indication: Colorectal cancer
     Dosage: ON DAYS 1 - 14
     Route: 048
     Dates: start: 202110, end: 202202
  2. OXALIPLATIN [Suspect]
     Active Substance: OXALIPLATIN
     Indication: Colorectal cancer
     Dosage: ON DAY 1
     Route: 065
     Dates: start: 202110, end: 202202

REACTIONS (1)
  - Acute myeloid leukaemia [Recovering/Resolving]
